FAERS Safety Report 9189500 (Version 1)
Quarter: 2013Q1

REPORT INFORMATION
  Report Type: Spontaneous
  Country: US (occurrence: US)
  Receive Date: 20130326
  Receipt Date: 20130326
  Transmission Date: 20140127
  Serious: No
  Sender: FDA-Public Use
  Company Number: US-009507513-1303USA009518

PATIENT
  Sex: Male

DRUGS (1)
  1. NASONEX [Suspect]
     Dosage: 2 DF, QD
     Route: 045
     Dates: start: 201211

REACTIONS (3)
  - No adverse event [Unknown]
  - Device leakage [Unknown]
  - Drug dose omission [Unknown]
